FAERS Safety Report 16612534 (Version 1)
Quarter: 2019Q3

REPORT INFORMATION
  Report Type: Spontaneous
  Country: US (occurrence: US)
  Receive Date: 20190607
  Receipt Date: 20190607
  Transmission Date: 20191004
  Serious: Yes (Life-Threatening, Disabling, Other)
  Sender: FDA-Public Use
  Company Number: None

PATIENT
  Age: 60 Year
  Sex: Female
  Weight: 58.97 kg

DRUGS (1)
  1. ESTRADIOL TRANSDERMAL SYSTEM [Suspect]
     Active Substance: ESTRADIOL
     Indication: HORMONE REPLACEMENT THERAPY
     Dosage: ?          QUANTITY:1 DF DOSAGE FORM;?
     Route: 061
     Dates: start: 20190403, end: 20190417

REACTIONS (6)
  - Blood pressure fluctuation [None]
  - Device adhesion issue [None]
  - Heart rate irregular [None]
  - Breast enlargement [None]
  - Weight increased [None]
  - Chest discomfort [None]

NARRATIVE: CASE EVENT DATE: 201904
